FAERS Safety Report 5628769-9 (Version None)
Quarter: 2008Q1

REPORT INFORMATION
  Report Type: 
  Country: None (occurrence: None)
  Receive Date: 20080215
  Receipt Date: 20080206
  Transmission Date: 20080703
  Serious: Yes (Other)
  Sender: FDA-Public Use
  Company Number: US-PFIZER INC-2008012536

PATIENT
  Sex: Female
  Weight: 43.636 kg

DRUGS (4)
  1. CHANTIX [Suspect]
     Indication: SMOKING CESSATION THERAPY
  2. ATIVAN [Concomitant]
  3. ALBUTEROL [Concomitant]
  4. COMBIVENT [Concomitant]

REACTIONS (7)
  - DEPRESSION [None]
  - DRUG DOSE OMISSION [None]
  - DYSPNOEA [None]
  - IMMUNOGLOBULINS DECREASED [None]
  - PANIC ATTACK [None]
  - SUICIDAL IDEATION [None]
  - TREMOR [None]
